FAERS Safety Report 8277558-8 (Version None)
Quarter: 2012Q2

REPORT INFORMATION
  Report Type: 
  Country: None (occurrence: None)
  Receive Date: 20120412
  Receipt Date: 20120403
  Transmission Date: 20120825
  Serious: Yes (Other)
  Sender: FDA-Public Use
  Company Number: JP-FRI-1000029186

PATIENT
  Sex: Male

DRUGS (4)
  1. ZOLPIDEM [Concomitant]
     Dosage: 10 MG
     Route: 048
  2. RIZE [Concomitant]
     Dosage: 10 MG
     Route: 048
  3. GOODMIN [Concomitant]
     Dosage: 0.25 MG
     Route: 048
  4. LEXAPRO [Suspect]
     Indication: DEPRESSION
     Dosage: 20 MG
     Route: 048
     Dates: start: 20111210

REACTIONS (1)
  - BLOOD CREATINE PHOSPHOKINASE INCREASED [None]
